FAERS Safety Report 8767246 (Version 1)
Quarter: 2012Q4

REPORT INFORMATION
  Report Type: 
  Country: US (occurrence: US)
  Receive Date: 20120904
  Receipt Date: 20120904
  Transmission Date: 20130627
  Serious: Yes (Hospitalization)
  Sender: FDA-Public Use
  Company Number: US-JNJFOC-20120604870

PATIENT
  Sex: Male

DRUGS (7)
  1. LEVAQUIN [Suspect]
     Indication: PNEUMONIA
     Route: 048
     Dates: start: 200910, end: 200911
  2. LEVAQUIN [Suspect]
     Indication: PNEUMONIA
     Route: 042
  3. FUROSEMIDE [Concomitant]
     Route: 065
  4. ISORBIDE [Concomitant]
     Route: 065
  5. LISINOPRIL [Concomitant]
     Route: 065
  6. METOPROLOL [Concomitant]
     Route: 065
  7. SIMVASTATIN [Concomitant]
     Route: 065

REACTIONS (6)
  - Cervicobrachial syndrome [Recovering/Resolving]
  - Osteoarthritis [Recovering/Resolving]
  - Joint range of motion decreased [Recovering/Resolving]
  - Anxiety [Unknown]
  - Muscular weakness [Recovering/Resolving]
  - Musculoskeletal pain [Recovering/Resolving]
